FAERS Safety Report 7592909-5 (Version None)
Quarter: 2011Q3

REPORT INFORMATION
  Report Type: 
  Country: None (occurrence: None)
  Receive Date: 20110706
  Receipt Date: 20110607
  Transmission Date: 20111222
  Serious: Yes (Other)
  Sender: FDA-Public Use
  Company Number: CA-ROCHE-760773

PATIENT
  Sex: Male

DRUGS (8)
  1. VITAMIN D [Concomitant]
  2. PLAQUENIL [Concomitant]
  3. TYLENOL-500 [Concomitant]
     Dosage: DRUG: TYLENOL EXTRA STRENGTH, FREQUENCY: PRN
  4. TOCILIZUMAB [Suspect]
     Indication: RHEUMATOID ARTHRITIS
     Dosage: FORM: INFUSION
     Route: 042
     Dates: start: 20101222
  5. FOLIC ACID [Concomitant]
  6. ETODOLAC [Concomitant]
  7. METHOTREXATE [Concomitant]
  8. ASCORBIC ACID [Concomitant]

REACTIONS (4)
  - PAIN [None]
  - SPEECH DISORDER [None]
  - FATIGUE [None]
  - MEMORY IMPAIRMENT [None]
